FAERS Safety Report 17505768 (Version 3)
Quarter: 2020Q1

REPORT INFORMATION
  Report Type: Report from Study
  Country: US (occurrence: US)
  Receive Date: 20200306
  Receipt Date: 20200330
  Transmission Date: 20200409
  Serious: Yes (Hospitalization, Other)
  Sender: FDA-Public Use
  Company Number: US-BRISTOL-MYERS SQUIBB COMPANY-BMS-2020-017932

PATIENT
  Age: 81 Year
  Sex: Male
  Weight: 86.1 kg

DRUGS (2)
  1. VOLTAREN [DICLOFENAC] [Concomitant]
     Active Substance: DICLOFENAC SODIUM
     Indication: PRODUCT USED FOR UNKNOWN INDICATION
     Route: 065
  2. NIVOLUMAB [Suspect]
     Active Substance: NIVOLUMAB
     Indication: RENAL CELL CARCINOMA
     Dosage: 480 MILLIGRAM
     Route: 065
     Dates: start: 20190829, end: 20200116

REACTIONS (3)
  - Chronic kidney disease [Unknown]
  - Pyrexia [Unknown]
  - Kidney infection [Unknown]

NARRATIVE: CASE EVENT DATE: 20200213
